FAERS Safety Report 5164058-7 (Version None)
Quarter: 2006Q4

REPORT INFORMATION
  Report Type: 
  Country: None (occurrence: None)
  Receive Date: 20061124
  Receipt Date: 20061109
  Transmission Date: 20070319
  Serious: Yes (Death)
  Sender: FDA-Public Use
  Company Number: 2006138474

PATIENT
  Age: 47 Year

DRUGS (3)
  1. AMLODIPINE [Suspect]
  2. METFORMIN HCL [Suspect]
  3. OXCARBAZEPINE [Suspect]

REACTIONS (1)
  - COMPLETED SUICIDE [None]
